FAERS Safety Report 10170272 (Version 1)
Quarter: 2014Q2

REPORT INFORMATION
  Report Type: Spontaneous
  Country: GB (occurrence: GB)
  Receive Date: 20140513
  Receipt Date: 20140513
  Transmission Date: 20141212
  Serious: Yes (Hospitalization, Other)
  Sender: FDA-Public Use
  Company Number: GB-ELI_LILLY_AND_COMPANY-GB201405001004

PATIENT
  Sex: Male

DRUGS (1)
  1. EFIENT [Suspect]
     Indication: CARDIAC DISORDER
     Dosage: 10 MG, QD
     Route: 048

REACTIONS (1)
  - Brain injury [Unknown]
